FAERS Safety Report 11271817 (Version 1)
Quarter: 2015Q3

REPORT INFORMATION
  Report Type: Spontaneous
  Country: FR (occurrence: FR)
  Receive Date: 20150715
  Receipt Date: 20150715
  Transmission Date: 20151125
  Serious: Yes (Other)
  Sender: FDA-Public Use
  Company Number: FR-LEO PHARMA-235489

PATIENT
  Age: 82 Year
  Sex: Male

DRUGS (1)
  1. PICATO [Suspect]
     Active Substance: INGENOL MEBUTATE
     Indication: ACTINIC KERATOSIS

REACTIONS (6)
  - Deafness [Unknown]
  - Application site burn [Unknown]
  - Application site erythema [Unknown]
  - Eye pain [Unknown]
  - Ear pain [Unknown]
  - Application site exfoliation [Unknown]
